FAERS Safety Report 8471419-7 (Version None)
Quarter: 2012Q2

REPORT INFORMATION
  Report Type: 
  Country: None (occurrence: None)
  Receive Date: 20120627
  Receipt Date: 20120622
  Transmission Date: 20120825
  Serious: Yes (Life-Threatening, Hospitalization)
  Sender: FDA-Public Use
  Company Number: FR-ROCHE-1081470

PATIENT
  Age: 36 Year
  Sex: Male

DRUGS (9)
  1. CLONAZEPAM [Suspect]
     Indication: TONIC CONVULSION
     Route: 042
     Dates: start: 20110911, end: 20110911
  2. MORPHINE [Suspect]
     Indication: MUSCULOSKELETAL PAIN
     Route: 040
     Dates: start: 20110911, end: 20110911
  3. SEVELAMER [Concomitant]
  4. HYDREA [Concomitant]
  5. CALCIDIA [Concomitant]
  6. PREVISCAN (FLUINDIONE) [Concomitant]
  7. RAMIPRIL [Concomitant]
  8. LASIX [Concomitant]
  9. UN-ALFA [Concomitant]

REACTIONS (5)
  - BRADYPNOEA [None]
  - DISTURBANCE IN ATTENTION [None]
  - COMA [None]
  - TOXICITY TO VARIOUS AGENTS [None]
  - MIOSIS [None]
